FAERS Safety Report 8830092 (Version 2)
Quarter: 2013Q1

REPORT INFORMATION
  Report Type: Spontaneous
  Country: PT (occurrence: PT)
  Receive Date: 20121008
  Receipt Date: 20130207
  Transmission Date: 20140127
  Serious: Yes (Hospitalization, Other)
  Sender: FDA-Public Use
  Company Number: PT-JNJFOC-20120912304

PATIENT
  Age: 29 Year
  Sex: Male

DRUGS (29)
  1. REMICADE [Suspect]
     Indication: ANKYLOSING SPONDYLITIS
     Route: 042
     Dates: start: 20031009
  2. REMICADE [Suspect]
     Indication: ANKYLOSING SPONDYLITIS
     Route: 042
     Dates: start: 20051130
  3. REMICADE [Suspect]
     Indication: ANKYLOSING SPONDYLITIS
     Route: 042
     Dates: start: 20040517
  4. DICLOFENAC [Concomitant]
     Indication: ANKYLOSING SPONDYLITIS
     Route: 065
     Dates: start: 20111020
  5. DICLOFENAC [Concomitant]
     Indication: ANKYLOSING SPONDYLITIS
     Route: 065
  6. TRAMADOL [Concomitant]
     Indication: ANKYLOSING SPONDYLITIS
     Route: 065
  7. TRAMADOL [Concomitant]
     Indication: ANKYLOSING SPONDYLITIS
     Route: 065
  8. ISONIAZID [Concomitant]
     Indication: PULMONARY TUBERCULOSIS
     Route: 065
     Dates: start: 20101008
  9. ISONIAZID [Concomitant]
     Indication: PULMONARY TUBERCULOSIS
     Route: 065
  10. ISONIAZID [Concomitant]
     Indication: BONE TUBERCULOSIS
     Route: 065
     Dates: start: 20101008
  11. ISONIAZID [Concomitant]
     Indication: BONE TUBERCULOSIS
     Route: 065
  12. RIFAMPICIN [Concomitant]
     Indication: PULMONARY TUBERCULOSIS
     Route: 065
     Dates: start: 20100618
  13. RIFAMPICIN [Concomitant]
     Indication: PULMONARY TUBERCULOSIS
     Route: 065
  14. RIFAMPICIN [Concomitant]
     Indication: BONE TUBERCULOSIS
     Route: 065
  15. RIFAMPICIN [Concomitant]
     Indication: BONE TUBERCULOSIS
     Route: 065
     Dates: start: 20100618
  16. PYRAZINAMIDE [Concomitant]
     Indication: BONE TUBERCULOSIS
     Route: 065
  17. ETHAMBUTOL [Concomitant]
     Indication: PULMONARY TUBERCULOSIS
     Route: 065
     Dates: start: 20100618
  18. ETHAMBUTOL [Concomitant]
     Indication: PULMONARY TUBERCULOSIS
     Route: 065
  19. ETHAMBUTOL [Concomitant]
     Indication: BONE TUBERCULOSIS
     Route: 065
  20. ETHAMBUTOL [Concomitant]
     Indication: BONE TUBERCULOSIS
     Route: 065
     Dates: start: 20100618
  21. VITAMIN B6 [Concomitant]
     Route: 065
  22. PIPERACILLIN [Concomitant]
     Indication: PNEUMONIA BACTERIAL
     Route: 065
  23. TAZOBACTAM [Concomitant]
     Indication: PNEUMONIA BACTERIAL
     Route: 065
  24. CLINDAMYCIN [Concomitant]
     Indication: PNEUMONIA BACTERIAL
     Route: 065
  25. IMIPENEM [Concomitant]
     Route: 065
  26. LINEZOLID [Concomitant]
     Route: 065
  27. PAMIDRONATE [Concomitant]
     Route: 042
     Dates: start: 20111020
  28. PARACETAMOL [Concomitant]
     Route: 042
     Dates: start: 20111020
  29. OMEPRAZOLE [Concomitant]
     Route: 065
     Dates: start: 20111020

REACTIONS (14)
  - Pleural effusion [Recovering/Resolving]
  - Leukocytoclastic vasculitis [Unknown]
  - Atelectasis [Recovering/Resolving]
  - Pneumonia bacterial [Recovering/Resolving]
  - Empyema [Unknown]
  - Weight decreased [Unknown]
  - Asthenia [Unknown]
  - Pulmonary tuberculosis [Unknown]
  - Pericardial effusion [Recovering/Resolving]
  - Septic shock [Unknown]
  - Respiratory failure [Unknown]
  - Bone tuberculosis [Unknown]
  - Normochromic normocytic anaemia [Unknown]
  - Drug resistance [Unknown]
